APPROVED DRUG PRODUCT: CEPHALOTHIN SODIUM
Active Ingredient: CEPHALOTHIN SODIUM
Strength: EQ 2GM BASE/VIAL
Dosage Form/Route: INJECTABLE;INJECTION
Application: A062666 | Product #001
Applicant: ABRAXIS PHARMACEUTICAL PRODUCTS
Approved: Jun 10, 1987 | RLD: No | RS: No | Type: DISCN